FAERS Safety Report 10253018 (Version 1)
Quarter: 2014Q2

REPORT INFORMATION
  Report Type: Spontaneous
  Country: US (occurrence: US)
  Receive Date: 20140623
  Receipt Date: 20140623
  Transmission Date: 20141212
  Serious: Yes (Other)
  Sender: FDA-Public Use
  Company Number: US-PFIZER INC-2014165515

PATIENT
  Age: 83 Year
  Sex: Female

DRUGS (2)
  1. SUTENT [Suspect]
     Dosage: 12.5 MG, DAILY
     Dates: start: 20140524
  2. COUMADINE [Concomitant]
     Dosage: UNK

REACTIONS (7)
  - Haemorrhage [Unknown]
  - Dehydration [Unknown]
  - Pruritus [Unknown]
  - Fatigue [Unknown]
  - Dizziness [Unknown]
  - Epistaxis [Unknown]
  - Laceration [Unknown]
